FAERS Safety Report 8794616 (Version 1)
Quarter: 2012Q4

REPORT INFORMATION
  Report Type: 
  Country: US (occurrence: US)
  Receive Date: 20120917
  Receipt Date: 20120917
  Transmission Date: 20130627
  Serious: No
  Sender: FDA-Public Use
  Company Number: US-VERTEX PHARMACEUTICAL INC.-AE-2012-010226

PATIENT
  Age: 52 Year
  Sex: Female
  Weight: 61.36 kg

DRUGS (2)
  1. INCIVEK [Suspect]
     Indication: HEPATITIS C
     Route: 048
     Dates: start: 20120120, end: 20120302
  2. RIBAVIRIN [Concomitant]
     Indication: HEPATITIS C
     Dates: start: 201201

REACTIONS (9)
  - Alopecia [Recovered/Resolved]
  - Decreased appetite [Recovered/Resolved]
  - Asthenia [Recovered/Resolved]
  - Drug ineffective [Unknown]
  - Rash generalised [Recovered/Resolved]
  - Blister [Not Recovered/Not Resolved]
  - Haemoglobin decreased [Recovered/Resolved]
  - Vomiting [Recovered/Resolved]
  - Nausea [Recovered/Resolved]
